FAERS Safety Report 6657067-X (Version None)
Quarter: 2010Q1

REPORT INFORMATION
  Report Type: 
  Country: None (occurrence: None)
  Receive Date: 20100330
  Receipt Date: 20100315
  Transmission Date: 20100710
  Serious: Yes (Other)
  Sender: FDA-Public Use
  Company Number: US-CELGENEUS-163-21880-10011795

PATIENT
  Sex: Female

DRUGS (2)
  1. REVLIMID [Suspect]
     Route: 048
     Dates: start: 20100117, end: 20100125
  2. REVLIMID [Suspect]
     Route: 048
     Dates: start: 20070301, end: 20070101

REACTIONS (2)
  - RASH [None]
  - UPPER LIMB FRACTURE [None]
